FAERS Safety Report 8595840-1 (Version None)
Quarter: 2012Q3

REPORT INFORMATION
  Report Type: 
  Country: None (occurrence: None)
  Receive Date: 20120815
  Receipt Date: 20120815
  Transmission Date: 20120928
  Serious: Yes (Hospitalization)
  Sender: FDA-Public Use
  Company Number: AU-ROCHE-1098653

PATIENT
  Sex: Male
  Weight: 71 kg

DRUGS (6)
  1. VALACICLOVIR [Concomitant]
     Route: 065
     Dates: start: 20120128
  2. PREDNISOLONE [Concomitant]
     Route: 065
     Dates: start: 20111001
  3. MARIJUANA [Concomitant]
     Indication: DEPRESSION
     Route: 065
  4. MABTHERA [Suspect]
     Indication: NON-HODGKIN'S LYMPHOMA UNSPECIFIED HISTOLOGY INDOLENT
     Dosage: DATE OF MOST RECENT DOSE OF 712.5 MG/ML PRIOR TO SAE 12/JUN/2012
     Route: 042
     Dates: start: 20111001
  5. LORATADINE [Concomitant]
     Route: 065
     Dates: start: 20111001
  6. ACETAMINOPHEN [Concomitant]
     Route: 065
     Dates: start: 20111001

REACTIONS (1)
  - DEPRESSION [None]
